FAERS Safety Report 4315883-3 (Version None)
Quarter: 2004Q1

REPORT INFORMATION
  Report Type: 
  Country: None (occurrence: None)
  Receive Date: 20040310
  Receipt Date: 20040218
  Transmission Date: 20041129
  Serious: No
  Sender: FDA-Public Use
  Company Number: 2004S1000035

PATIENT
  Age: 53 Year
  Sex: Male
  Weight: 81 kg

DRUGS (5)
  1. CUBICIN [Suspect]
     Indication: POSTOPERATIVE INFECTION
     Dosage: 4 MG/KG;QD;IV
     Route: 042
     Dates: start: 20040214, end: 20040227
  2. CUBICIN [Suspect]
     Indication: STAPHYLOCOCCAL INFECTION
     Dosage: 4 MG/KG;QD;IV
     Route: 042
     Dates: start: 20040214, end: 20040227
  3. KEFLEX [Concomitant]
  4. CEFAPIME [Concomitant]
  5. VANCOMYCIN HYDROCHLORIDE [Concomitant]

REACTIONS (1)
  - CHEST PAIN [None]
